FAERS Safety Report 20524174 (Version 5)
Quarter: 2023Q1

REPORT INFORMATION
  Report Type: Report from Study
  Country: US (occurrence: US)
  Receive Date: 20220228
  Receipt Date: 20230327
  Transmission Date: 20230418
  Serious: Yes (Other)
  Sender: FDA-Public Use
  Company Number: US-NOVARTISTESTPH-NVSC2022US044479

PATIENT
  Age: 40 Year
  Sex: Female

DRUGS (4)
  1. KESIMPTA [Suspect]
     Active Substance: OFATUMUMAB
     Indication: Multiple sclerosis
     Dosage: 20 MG, QW
     Route: 058
     Dates: start: 20220216
  2. KESIMPTA [Suspect]
     Active Substance: OFATUMUMAB
     Indication: Clinically isolated syndrome
  3. KESIMPTA [Suspect]
     Active Substance: OFATUMUMAB
     Indication: Relapsing-remitting multiple sclerosis
  4. KESIMPTA [Suspect]
     Active Substance: OFATUMUMAB
     Indication: Secondary progressive multiple sclerosis

REACTIONS (6)
  - Multiple sclerosis relapse [Recovered/Resolved]
  - Gait disturbance [Unknown]
  - Muscle spasms [Recovering/Resolving]
  - Musculoskeletal stiffness [Not Recovered/Not Resolved]
  - Headache [Not Recovered/Not Resolved]
  - Rhinorrhoea [Not Recovered/Not Resolved]

NARRATIVE: CASE EVENT DATE: 20220216
